FAERS Safety Report 24308764 (Version 1)
Quarter: 2024Q3

REPORT INFORMATION
  Report Type: Spontaneous
  Country: ES (occurrence: ES)
  Receive Date: 20240911
  Receipt Date: 20240911
  Transmission Date: 20241016
  Serious: Yes (Death, Hospitalization, Other)
  Sender: AMGEN
  Company Number: ES-AMGEN-ESPSP2024177932

PATIENT
  Age: 62 Year
  Sex: Female

DRUGS (8)
  1. BEVACIZUMAB [Suspect]
     Active Substance: BEVACIZUMAB
     Indication: Triple negative breast cancer
     Dosage: TRIWEEKLY
     Route: 065
  2. CARBOPLATIN [Concomitant]
     Active Substance: CARBOPLATIN
     Dosage: FOUR CYCLES OF TRIWEEKLY
  3. PACLITAXEL [Concomitant]
     Active Substance: PACLITAXEL
     Dosage: 80 MILLIGRAM/SQ. METER, QWK, 12 CYCLES
  4. PACLITAXEL [Concomitant]
     Active Substance: PACLITAXEL
     Dosage: 80 MILLIGRAM/SQ. METER, QWK
  5. EPIRUBICIN [Concomitant]
     Active Substance: EPIRUBICIN
     Dosage: 90 MILLIGRAM/SQ. METER, FOUR CYCLES
  6. CYCLOPHOSPHAMIDE [Concomitant]
     Active Substance: CYCLOPHOSPHAMIDE
     Dosage: 600 MILLIGRAM/SQ. METER
  7. ATEZOLIZUMAB [Concomitant]
     Active Substance: ATEZOLIZUMAB
     Dosage: 1200 MILLIGRAM, TRIWEEKLY
     Dates: end: 202202
  8. DEXAMETHASONE [Concomitant]
     Active Substance: DEXAMETHASONE
     Dosage: 8 MILLIGRAM, QD

REACTIONS (4)
  - Death [Fatal]
  - Neurotoxicity [Unknown]
  - Polyneuropathy [Unknown]
  - Triple negative breast cancer [Unknown]

NARRATIVE: CASE EVENT DATE: 20230901
